FAERS Safety Report 9964362 (Version 1)
Quarter: 2014Q1

REPORT INFORMATION
  Report Type: Spontaneous
  Country: FR (occurrence: FR)
  Receive Date: 20140305
  Receipt Date: 20140305
  Transmission Date: 20141002
  Serious: Yes (Hospitalization)
  Sender: FDA-Public Use
  Company Number: FR-GLAXOSMITHKLINE-B0971783A

PATIENT
  Age: 28 Year
  Sex: Female

DRUGS (6)
  1. AUGMENTIN (ORAL) [Suspect]
     Indication: PRODUCT USED FOR UNKNOWN INDICATION
     Dosage: 1000MG TWICE PER DAY
     Route: 048
     Dates: start: 20140206, end: 20140214
  2. VENTOLINE [Suspect]
     Indication: PRODUCT USED FOR UNKNOWN INDICATION
     Route: 065
     Dates: start: 20140206, end: 20140214
  3. CORTANCYL [Suspect]
     Indication: PRODUCT USED FOR UNKNOWN INDICATION
     Dosage: 20MG THREE TIMES PER DAY
     Route: 048
     Dates: start: 20140206, end: 20140211
  4. DAFALGAN [Suspect]
     Indication: PRODUCT USED FOR UNKNOWN INDICATION
     Dosage: 1000MG THREE TIMES PER DAY
     Route: 048
     Dates: start: 20140206, end: 20140214
  5. BIOCALYPTOL [Suspect]
     Indication: PRODUCT USED FOR UNKNOWN INDICATION
     Route: 048
     Dates: start: 20140206, end: 20140214
  6. ULTRA LEVURE [Suspect]
     Indication: PRODUCT USED FOR UNKNOWN INDICATION
     Dosage: 1UNIT PER DAY
     Route: 065
     Dates: start: 20140206, end: 20140214

REACTIONS (5)
  - Generalised oedema [Unknown]
  - Abdominal pain [Unknown]
  - Hypoalbuminaemia [Unknown]
  - Cell death [Unknown]
  - Drug hypersensitivity [Unknown]
